FAERS Safety Report 5427999-9 (Version None)
Quarter: 2007Q3

REPORT INFORMATION
  Report Type: 
  Country: None (occurrence: None)
  Receive Date: 20070731
  Receipt Date: 20070409
  Transmission Date: 20080115
  Serious: No
  Sender: FDA-Public Use
  Company Number: US200704002184

PATIENT
  Age: 69 Year
  Sex: Male

DRUGS (7)
  1. BYETTA [Suspect]
     Indication: TYPE 2 DIABETES MELLITUS
     Dosage: 5 UG, 2/D, SUBCUTANEOUS
     Route: 058
     Dates: start: 20070325
  2. EXENATIDE 5MCG PEN, DISPOSABLE DEVICE (EXENATIDE PEN (5MCG)) PEN, DISP [Concomitant]
  3. NOVOLOG [Concomitant]
  4. GLUCOPHAGE [Concomitant]
  5. GLUCOTROL [Concomitant]
  6. GLIPIZIDE [Concomitant]
  7. DRUG USED IN DIABETES [Concomitant]

REACTIONS (1)
  - ENERGY INCREASED [None]
